FAERS Safety Report 14610002 (Version 1)
Quarter: 2018Q1

REPORT INFORMATION
  Report Type: Spontaneous
  Country: US (occurrence: US)
  Receive Date: 20180307
  Receipt Date: 20180307
  Transmission Date: 20180509
  Serious: Yes (Other)
  Sender: FDA-Public Use
  Company Number: US-ELI_LILLY_AND_COMPANY-US201802010811

PATIENT
  Sex: Male

DRUGS (1)
  1. HUMULIN R [Suspect]
     Active Substance: INSULIN HUMAN
     Indication: PRODUCT USED FOR UNKNOWN INDICATION
     Dosage: 35 U, TID
     Route: 065
     Dates: start: 2014

REACTIONS (3)
  - Hyperglycaemia [Unknown]
  - Hypoglycaemia [Unknown]
  - Renal failure [Unknown]
